FAERS Safety Report 8002086-4 (Version None)
Quarter: 2011Q4

REPORT INFORMATION
  Report Type: 
  Country: None (occurrence: None)
  Receive Date: 20111222
  Receipt Date: 20111208
  Transmission Date: 20120403
  Serious: Yes (Other)
  Sender: FDA-Public Use
  Company Number: KR-WATSON-2011-21452

PATIENT
  Age: 22 Year
  Sex: Male

DRUGS (7)
  1. HYDROXYZINE PAMOATE [Suspect]
     Indication: IDIOPATHIC URTICARIA
  2. HYDROXYZINE PAMOATE [Suspect]
     Indication: ASTHMA
  3. MONTELUKAST SODIUM [Suspect]
     Indication: RHINITIS ALLERGIC
  4. CETIRIZINE HCL [Suspect]
     Indication: IDIOPATHIC URTICARIA
  5. CETIRIZINE HCL [Suspect]
     Indication: RHINITIS ALLERGIC
     Route: 065
  6. CETIRIZINE HCL [Suspect]
     Indication: ASTHMA
  7. HYDROXYZINE PAMOATE [Suspect]
     Indication: RHINITIS ALLERGIC
     Route: 065

REACTIONS (1)
  - URTICARIA [None]
